FAERS Safety Report 5755707-0 (Version None)
Quarter: 2008Q2

REPORT INFORMATION
  Report Type: 
  Country: None (occurrence: None)
  Receive Date: 20080602
  Receipt Date: 20080502
  Transmission Date: 20081010
  Serious: No
  Sender: FDA-Public Use
  Company Number: US-BAYER-200815035NA

PATIENT
  Age: 33 Year
  Sex: Female

DRUGS (1)
  1. YAZ [Suspect]
     Indication: PROPHYLAXIS
     Route: 048
     Dates: start: 20080115

REACTIONS (4)
  - GLOSSITIS [None]
  - TONGUE BLISTERING [None]
  - TONGUE GEOGRAPHIC [None]
  - TONGUE ULCERATION [None]
